FAERS Safety Report 15073228 (Version 2)
Quarter: 2018Q3

REPORT INFORMATION
  Report Type: Spontaneous
  Country: US (occurrence: US)
  Receive Date: 20180627
  Receipt Date: 20180710
  Transmission Date: 20181010
  Serious: Yes (Life-Threatening, Hospitalization, Other)
  Sender: FDA-Public Use
  Company Number: US-AUROBINDO-AUR-APL-2018-032635

PATIENT
  Age: 54 Year
  Sex: Female

DRUGS (3)
  1. CAPECITABINE. [Suspect]
     Active Substance: CAPECITABINE
     Dosage: DOSE?REDUCED TO 1800 MG/M2/D ON A 7 DAY ON, 7 DAY OFF SCHEDULE ; CYCLICAL
  2. CAPECITABINE. [Suspect]
     Active Substance: CAPECITABINE
     Indication: INVASIVE DUCTAL BREAST CARCINOMA
     Dosage: 2000 MG/M2/D: CONTINUED THE SAME DOSE OF CAPECITABINE BUT SWITCHED TO A 7 DAY ON, 7 DAY OFF CYCLE...
     Route: 065
  3. CAPECITABINE. [Suspect]
     Active Substance: CAPECITABINE
     Dosage: 2000 MG/M2/D ; CYCLICAL

REACTIONS (5)
  - Diarrhoea [Unknown]
  - Hypovolaemic shock [Unknown]
  - Nausea [Unknown]
  - Toxicity to various agents [Unknown]
  - Vomiting [Unknown]
